FAERS Safety Report 7373270-8 (Version None)
Quarter: 2011Q1

REPORT INFORMATION
  Report Type: 
  Country: None (occurrence: None)
  Receive Date: 20110324
  Receipt Date: 20110323
  Transmission Date: 20110831
  Serious: Yes (Other)
  Sender: FDA-Public Use
  Company Number: US-PFIZER INC-2011065034

PATIENT
  Sex: Female
  Weight: 65.76 kg

DRUGS (3)
  1. TOPROL-XL [Concomitant]
     Dosage: UNK
  2. XALATAN [Suspect]
     Indication: GLAUCOMA
     Dosage: 1 GTT, DAILY
     Route: 047
  3. AVAPRO [Concomitant]
     Dosage: UNK

REACTIONS (2)
  - GLAUCOMA [None]
  - ANGLE CLOSURE GLAUCOMA [None]
